FAERS Safety Report 10235264 (Version 1)
Quarter: 2014Q2

REPORT INFORMATION
  Report Type: Spontaneous
  Country: AU (occurrence: None)
  Receive Date: 20140611
  Receipt Date: 20140611
  Transmission Date: 20141212
  Serious: Yes (Hospitalization)
  Sender: FDA-Public Use
  Company Number: IPC201405-000266

PATIENT
  Age: 80 Year
  Sex: Female

DRUGS (12)
  1. METOPROLOL TARTRATE [Suspect]
  2. CIPROFLOXACIN [Suspect]
     Route: 048
  3. OXYCONTIN [Suspect]
     Indication: PAIN
     Dosage: 5MG TWICE DAILY COMMENCED ON DAY 7 OF ADMISSION
  4. VANCOMYCIN (VANCOMYCIN) (VANCOMYCIN) [Concomitant]
  5. CEFAZOLIN (CEFAZOLIN (CEFAZOLIN) [Concomitant]
  6. GENTAMICIN (GENTAMICIN) (GENTAMICIN) [Concomitant]
  7. PARACETAMOL (PARACETAMOL) (PARACETAMOL) [Suspect]
  8. SOLIFENACIN [Suspect]
  9. ASPIRIN [Suspect]
  10. THIAMINE [Suspect]
  11. CALCIUM (CALCIUM) (CALCIUM) [Suspect]
  12. CHOLECALCIFEROL [Suspect]

REACTIONS (3)
  - Myoclonus [None]
  - Cerebrovascular disorder [None]
  - Brain scan abnormal [None]
